FAERS Safety Report 5836564-0 (Version None)
Quarter: 2008Q3

REPORT INFORMATION
  Report Type: 
  Country: None (occurrence: None)
  Receive Date: 20080801
  Receipt Date: 20080414
  Transmission Date: 20090109
  Serious: No
  Sender: FDA-Public Use
  Company Number: 2008-0542

PATIENT
  Age: 83 Year
  Sex: Female

DRUGS (10)
  1. SOMATULINE DEPOT [Suspect]
     Indication: ACROMEGALY
     Dosage: 90MG(NOT REPO-2),SUBCUT
     Route: 058
     Dates: start: 20080407
  2. METFORMIN HCL [Concomitant]
  3. INSULIN [Concomitant]
  4. LEVOTHYROXINE [Concomitant]
  5. LISINOPRIL [Concomitant]
  6. SIMVASTATIN [Concomitant]
  7. ASPIRIN [Concomitant]
  8. CALCIUM PLUS D [Concomitant]
  9. MAGNESIUM SULFATE [Concomitant]
  10. FISH OIL [Concomitant]

REACTIONS (4)
  - ARTHRALGIA [None]
  - HYPOGLYCAEMIA [None]
  - JOINT STIFFNESS [None]
  - MUSCULOSKELETAL STIFFNESS [None]
